FAERS Safety Report 11786807 (Version 2)
Quarter: 2016Q1

REPORT INFORMATION
  Report Type: Spontaneous
  Country: US (occurrence: US)
  Receive Date: 20151130
  Receipt Date: 20160202
  Transmission Date: 20160525
  Serious: Yes (Other)
  Sender: FDA-Public Use
  Company Number: US-OTSUKA-2015_015288

PATIENT
  Age: 15 Year
  Sex: Female

DRUGS (2)
  1. REXULTI [Suspect]
     Active Substance: BREXPIPRAZOLE
     Indication: PSYCHOTIC DISORDER
  2. REXULTI [Suspect]
     Active Substance: BREXPIPRAZOLE
     Indication: DEPRESSION
     Dosage: UNK
     Route: 048
     Dates: start: 2015, end: 2015

REACTIONS (4)
  - Drug administered to patient of inappropriate age [Unknown]
  - Hypersensitivity [Unknown]
  - Off label use [Unknown]
  - Swollen tongue [Unknown]

NARRATIVE: CASE EVENT DATE: 2015
